FAERS Safety Report 23728510 (Version 3)
Quarter: 2025Q3

REPORT INFORMATION
  Report Type: Report from Study
  Country: EU (occurrence: EU)
  Receive Date: 20240410
  Receipt Date: 20250901
  Transmission Date: 20251021
  Serious: Yes (Death, Other)
  Sender: TEVA
  Company Number: EU-TEVA-VS-3180830

PATIENT

DRUGS (3)
  1. CARBOPLATIN [Suspect]
     Active Substance: CARBOPLATIN
     Indication: Small cell lung cancer
     Route: 065
  2. ETOPOSIDE [Suspect]
     Active Substance: ETOPOSIDE
     Indication: Small cell lung cancer
     Route: 065
  3. ATEZOLIZUMAB [Suspect]
     Active Substance: ATEZOLIZUMAB
     Indication: Small cell lung cancer
     Route: 065

REACTIONS (2)
  - Drug ineffective [Fatal]
  - Polyneuropathy [Unknown]
